FAERS Safety Report 24914913 (Version 1)
Quarter: 2025Q1

REPORT INFORMATION
  Report Type: Spontaneous
  Country: JP (occurrence: JP)
  Receive Date: 20250203
  Receipt Date: 20250203
  Transmission Date: 20250409
  Serious: Yes (Other)
  Sender: AMGEN
  Company Number: JP-TAKEDA-2025TJP001115

PATIENT
  Age: 74 Year
  Sex: Male

DRUGS (1)
  1. VECTIBIX [Suspect]
     Active Substance: PANITUMUMAB
     Indication: Colorectal cancer recurrent
     Route: 041

REACTIONS (2)
  - Colorectal cancer recurrent [Unknown]
  - Skin disorder [Recovering/Resolving]
